FAERS Safety Report 16499079 (Version 1)
Quarter: 2019Q3

REPORT INFORMATION
  Report Type: Report from Study
  Country: DE (occurrence: DE)
  Receive Date: 20190701
  Receipt Date: 20190701
  Transmission Date: 20191004
  Serious: Yes (Other)
  Sender: FDA-Public Use
  Company Number: DE-AMGEN-DEUNI2019102983

PATIENT
  Age: 62 Year
  Sex: Female
  Weight: 58 kg

DRUGS (14)
  1. FOLINIC ACID [Suspect]
     Active Substance: LEUCOVORIN
     Dosage: 645 MILLIGRAM
     Route: 065
     Dates: start: 20190418
  2. BISOPROLOL-RATIOPHARM [Concomitant]
     Active Substance: BISOPROLOL
     Indication: HYPERTENSION
     Dosage: (1.25 MILLIGRAM/2.5 MILLIGRAM/ 3.75 MILLIGRAM) QD
     Route: 048
     Dates: start: 19990101
  3. NOVALGIN (METAMIZOLE SODIUM) [Concomitant]
     Active Substance: METAMIZOLE SODIUM
     Dosage: 500 MILLIGRAM, AS NECESSARY
     Route: 048
     Dates: start: 20190107
  4. ZOPICLON [Concomitant]
     Active Substance: ZOPICLONE
     Dosage: 7.5 MILLIGRAM, AS NECESSARY
     Route: 048
     Dates: start: 20190107
  5. DUROGESIC [Concomitant]
     Active Substance: FENTANYL
     Dosage: 25 MICROGRAM, AS NECESSARY
     Route: 048
     Dates: start: 20190114
  6. PANITUMUMAB [Suspect]
     Active Substance: PANITUMUMAB
     Dosage: 355 MILLIGRAM
     Route: 042
     Dates: start: 20190418
  7. RAMIPRIL. [Concomitant]
     Active Substance: RAMIPRIL
     Indication: HYPERTENSION
     Dosage: 25 MILLIGRAM, QD
     Route: 048
     Dates: start: 19990101
  8. FOLINIC ACID [Suspect]
     Active Substance: LEUCOVORIN
     Indication: COLORECTAL CANCER METASTATIC
     Dosage: 647 MILLIGRAM
     Route: 065
     Dates: start: 20190107
  9. FLUOROURACIL. [Suspect]
     Active Substance: FLUOROURACIL
     Dosage: 647 MILLIGRAM
     Route: 042
     Dates: start: 20190107
  10. IRINOTECAN [Suspect]
     Active Substance: IRINOTECAN
     Indication: COLORECTAL CANCER METASTATIC
     Dosage: 233 MILLIGRAM
     Route: 065
     Dates: start: 20190107
  11. FLUOROURACIL. [Suspect]
     Active Substance: FLUOROURACIL
     Dosage: 645 MILLIGRAM
     Route: 042
     Dates: start: 20190418
  12. FLUOROURACIL. [Suspect]
     Active Substance: FLUOROURACIL
     Indication: COLORECTAL CANCER METASTATIC
     Dosage: 3880 MILLIGRAM
     Route: 040
     Dates: start: 20190107
  13. PANITUMUMAB [Suspect]
     Active Substance: PANITUMUMAB
     Indication: COLORECTAL CANCER METASTATIC
     Dosage: 354 MILLIGRAM
     Route: 042
     Dates: start: 20190107
  14. IRINOTECAN [Suspect]
     Active Substance: IRINOTECAN
     Dosage: 230 MILLIGRAM
     Route: 065
     Dates: start: 20190418

REACTIONS (1)
  - Neutropenia [Recovered/Resolved]

NARRATIVE: CASE EVENT DATE: 20190211
